FAERS Safety Report 6211930-2 (Version None)
Quarter: 2009Q2

REPORT INFORMATION
  Report Type: 
  Country: None (occurrence: None)
  Receive Date: 20090529
  Receipt Date: 20090515
  Transmission Date: 20091009
  Serious: Yes (Other)
  Sender: FDA-Public Use
  Company Number: 2009S1003021

PATIENT
  Age: 40 Year
  Sex: Male

DRUGS (14)
  1. CLOZAPINE [Suspect]
     Indication: SCHIZOAFFECTIVE DISORDER
     Dosage: 450 MG;DAILY;ORAL, 400 MG;DAILY;ORAL, 150 MG;AT BEDTIME;ORAL, 50 MG;DAILY;ORAL
     Route: 048
     Dates: start: 20090106, end: 20090119
  2. CLOZAPINE [Suspect]
     Indication: SCHIZOAFFECTIVE DISORDER
     Dosage: 450 MG;DAILY;ORAL, 400 MG;DAILY;ORAL, 150 MG;AT BEDTIME;ORAL, 50 MG;DAILY;ORAL
     Route: 048
     Dates: start: 20090119, end: 20090129
  3. CLOZAPINE [Suspect]
     Indication: SCHIZOAFFECTIVE DISORDER
     Dosage: 450 MG;DAILY;ORAL, 400 MG;DAILY;ORAL, 150 MG;AT BEDTIME;ORAL, 50 MG;DAILY;ORAL
     Route: 048
     Dates: start: 20090129, end: 20090217
  4. CLOZAPINE [Suspect]
     Indication: SCHIZOAFFECTIVE DISORDER
     Dosage: 450 MG;DAILY;ORAL, 400 MG;DAILY;ORAL, 150 MG;AT BEDTIME;ORAL, 50 MG;DAILY;ORAL
     Route: 048
     Dates: start: 20090220, end: 20090303
  5. CLOZAPINE [Suspect]
     Indication: SCHIZOAFFECTIVE DISORDER
     Dosage: 450 MG;DAILY;ORAL, 400 MG;DAILY;ORAL, 150 MG;AT BEDTIME;ORAL, 50 MG;DAILY;ORAL
     Route: 048
     Dates: start: 20081101
  6. SEROQUEL [Suspect]
  7. DEPAKOTE [Suspect]
  8. DIVALPROEX SODIUM [Concomitant]
  9. .. [Concomitant]
  10. LEVETIRACETAM [Concomitant]
  11. MULTI VITAMIN AND MINERAL + SELENIUM [Concomitant]
  12. IBUPROFEN [Concomitant]
  13. FINASTERIDE [Concomitant]
  14. LITHIUM [Concomitant]

REACTIONS (6)
  - DRUG DOSE OMISSION [None]
  - GRANULOCYTOPENIA [None]
  - LEUKOPENIA [None]
  - NEUTROPHIL COUNT DECREASED [None]
  - SEDATION [None]
  - TREATMENT NONCOMPLIANCE [None]
